FAERS Safety Report 8594547-4 (Version None)
Quarter: 2012Q3

REPORT INFORMATION
  Report Type: 
  Country: None (occurrence: None)
  Receive Date: 20120815
  Receipt Date: 20120808
  Transmission Date: 20120928
  Serious: Yes (Other)
  Sender: FDA-Public Use
  Company Number: HU-US-EMD SERONO, INC.-7151105

PATIENT
  Sex: Female

DRUGS (1)
  1. REBIF [Suspect]
     Indication: MULTIPLE SCLEROSIS
     Route: 058
     Dates: start: 20030101, end: 20120501

REACTIONS (3)
  - INJECTION SITE DERMATITIS [None]
  - WEIGHT DECREASED [None]
  - DEMYELINATION [None]
